FAERS Safety Report 5227449-1 (Version None)
Quarter: 2007Q1

REPORT INFORMATION
  Report Type: 
  Country: None (occurrence: None)
  Receive Date: 20070202
  Receipt Date: 20070122
  Transmission Date: 20070707
  Serious: Yes (Hospitalization, Other)
  Sender: FDA-Public Use
  Company Number: PHBS2007JP01513

PATIENT
  Age: 25 Year
  Sex: Male

DRUGS (4)
  1. GLEEVEC [Suspect]
     Indication: ACUTE LYMPHOCYTIC LEUKAEMIA
     Dosage: 600 MG/DAY
     Route: 048
     Dates: start: 20061226
  2. GLEEVEC [Suspect]
     Dosage: 600 MG/DAY
     Route: 048
  3. DORMICUM [Suspect]
     Indication: SEDATIVE THERAPY
     Dosage: UNK, UNK
     Route: 042
     Dates: end: 20070122
  4. CHEMOTHERAPEUTICS,OTHER [Interacting]
     Indication: ACUTE LYMPHOCYTIC LEUKAEMIA

REACTIONS (4)
  - BLOOD CREATINE PHOSPHOKINASE INCREASED [None]
  - DRUG INTERACTION [None]
  - GENERAL PHYSICAL HEALTH DETERIORATION [None]
  - RHABDOMYOLYSIS [None]
